FAERS Safety Report 23854390 (Version 1)
Quarter: 2024Q2

REPORT INFORMATION
  Report Type: Spontaneous
  Country: US (occurrence: None)
  Receive Date: 20240514
  Receipt Date: 20240514
  Transmission Date: 20240716
  Serious: Yes (Hospitalization)
  Sender: FDA-Public Use
  Company Number: None

PATIENT
  Sex: Female
  Weight: 61.69 kg

DRUGS (1)
  1. GAMUNEX-C [Suspect]
     Active Substance: HUMAN IMMUNOGLOBULIN G
     Indication: Chronic inflammatory demyelinating polyradiculoneuropathy
     Dosage: FREQUENCY : UNKNOWN;?
     Route: 042

REACTIONS (5)
  - Peripheral swelling [None]
  - Fall [None]
  - Peripheral venous disease [None]
  - Blood sodium decreased [None]
  - Venous thrombosis limb [None]

NARRATIVE: CASE EVENT DATE: 20240508
